FAERS Safety Report 12366226 (Version 2)
Quarter: 2016Q2

REPORT INFORMATION
  Report Type: Spontaneous
  Country: US (occurrence: US)
  Receive Date: 20160513
  Receipt Date: 20160602
  Transmission Date: 20160815
  Serious: Yes (Hospitalization, Other)
  Sender: FDA-Public Use
  Company Number: US-ELI_LILLY_AND_COMPANY-US201605000919

PATIENT
  Sex: Male

DRUGS (3)
  1. METFORMIN [Concomitant]
     Active Substance: METFORMIN HYDROCHLORIDE
     Dosage: UNK, UNKNOWN
     Route: 065
  2. TRULICITY [Suspect]
     Active Substance: DULAGLUTIDE
     Indication: TYPE 2 DIABETES MELLITUS
     Dosage: 1.5 MG, WEEKLY (1/W)
     Route: 065
     Dates: start: 201604, end: 20160501
  3. LISINOPRIL. [Concomitant]
     Active Substance: LISINOPRIL
     Dosage: UNK, UNKNOWN
     Route: 065

REACTIONS (4)
  - Headache [Unknown]
  - Myocardial necrosis marker increased [Unknown]
  - Abdominal pain [Unknown]
  - Palpitations [Unknown]

NARRATIVE: CASE EVENT DATE: 20160430
